FAERS Safety Report 10191924 (Version 1)
Quarter: 2014Q2

REPORT INFORMATION
  Report Type: Spontaneous
  Country: US (occurrence: US)
  Receive Date: 20140523
  Receipt Date: 20140523
  Transmission Date: 20141212
  Serious: No
  Sender: FDA-Public Use
  Company Number: US-PFIZER INC-2014142239

PATIENT
  Sex: Female

DRUGS (4)
  1. PRISTIQ [Suspect]
     Indication: AGITATION
     Dosage: 50 MG, 1X/DAY
     Route: 048
  2. PRISTIQ [Suspect]
     Dosage: 100 MG, 1X/DAY
     Route: 048
  3. ALDACTONE [Suspect]
     Dosage: UNK
  4. PREDNISONE [Concomitant]
     Dosage: UNK

REACTIONS (1)
  - Bronchitis [Unknown]
